FAERS Safety Report 20504132 (Version 1)
Quarter: 2022Q1

REPORT INFORMATION
  Report Type: Spontaneous
  Country: JP (occurrence: JP)
  Receive Date: 20220222
  Receipt Date: 20220222
  Transmission Date: 20220423
  Serious: Yes (Hospitalization)
  Sender: FDA-Public Use
  Company Number: JP-BEXIMCO-2022BEX00006

PATIENT
  Age: 31 Year
  Sex: Female

DRUGS (2)
  1. BACLOFEN [Suspect]
     Active Substance: BACLOFEN
     Indication: Muscle spasticity
     Dosage: 170 ?G DAILY DOSE
     Route: 037
  2. BACLOFEN [Suspect]
     Active Substance: BACLOFEN
     Dosage: 50 ?G VIA NEW ACCESS INTRATHECAL
     Route: 037

REACTIONS (2)
  - Posterior reversible encephalopathy syndrome [Recovered/Resolved]
  - Drug withdrawal syndrome [Recovered/Resolved]
